FAERS Safety Report 10307997 (Version 1)
Quarter: 2014Q3

REPORT INFORMATION
  Report Type: Spontaneous
  Country: AU (occurrence: AU)
  Receive Date: 20140716
  Receipt Date: 20140716
  Transmission Date: 20150326
  Serious: Yes (Hospitalization)
  Sender: FDA-Public Use
  Company Number: AU-SA-2014SA092541

PATIENT
  Age: 67 Year
  Sex: Male

DRUGS (12)
  1. METFORMIN [Suspect]
     Active Substance: METFORMIN HYDROCHLORIDE
     Indication: TYPE 2 DIABETES MELLITUS
     Route: 065
  2. PANTOPRAZOLE [Concomitant]
     Active Substance: PANTOPRAZOLE SODIUM
  3. FLUOXETINE [Concomitant]
     Active Substance: FLUOXETINE\FLUOXETINE HYDROCHLORIDE
  4. SODIUM PICOSULFATE [Suspect]
     Active Substance: SODIUM PICOSULFATE
     Indication: BOWEL PREPARATION
     Route: 065
  5. ISOPHANE INSULIN [Concomitant]
     Active Substance: INSULIN NOS
     Dosage: DOSE:30 UNIT(S)
  6. FELODIPINE. [Concomitant]
     Active Substance: FELODIPINE
  7. INDAPAMIDE. [Suspect]
     Active Substance: INDAPAMIDE
     Indication: HYPERTENSION
     Route: 065
  8. GLICLAZIDE [Concomitant]
     Active Substance: GLICLAZIDE
  9. PERINDOPRIL [Suspect]
     Active Substance: PERINDOPRIL
     Indication: HYPERTENSION
     Route: 065
  10. ATORVASTATIN [Concomitant]
     Active Substance: ATORVASTATIN
  11. ALLOPURINOL. [Concomitant]
     Active Substance: ALLOPURINOL
  12. WARFARIN [Concomitant]
     Active Substance: WARFARIN

REACTIONS (17)
  - Blood bicarbonate decreased [Recovering/Resolving]
  - PCO2 decreased [Recovering/Resolving]
  - Anuria [Recovering/Resolving]
  - Vomiting [Recovering/Resolving]
  - Blood pH decreased [Recovering/Resolving]
  - Blood lactic acid increased [Recovering/Resolving]
  - Coma scale abnormal [Unknown]
  - Nausea [Recovering/Resolving]
  - Lactic acidosis [Recovering/Resolving]
  - Blood chloride decreased [Recovering/Resolving]
  - Base excess decreased [Recovering/Resolving]
  - Blood potassium increased [Recovering/Resolving]
  - Respiratory rate increased [Recovering/Resolving]
  - Renal failure acute [Recovering/Resolving]
  - Blood creatinine increased [Recovering/Resolving]
  - Sinus tachycardia [Recovering/Resolving]
  - Off label use [Unknown]
